FAERS Safety Report 5075281-4 (Version None)
Quarter: 2006Q3

REPORT INFORMATION
  Report Type: 
  Country: None (occurrence: None)
  Receive Date: 20060809
  Receipt Date: 20051031
  Transmission Date: 20061208
  Serious: No
  Sender: FDA-Public Use
  Company Number: US-AMGEN-KDL156564

PATIENT
  Age: 62 Year
  Sex: Female
  Weight: 79.5 kg

DRUGS (5)
  1. PROCRIT [Suspect]
     Indication: MYELODYSPLASTIC SYNDROME
     Route: 058
     Dates: start: 20030101
  2. LEUKINE [Concomitant]
  3. BENICAR [Concomitant]
  4. ASPIRIN [Concomitant]
  5. BLOOD CELLS, PACKED HUMAN [Concomitant]
     Route: 042

REACTIONS (2)
  - DIZZINESS [None]
  - MALAISE [None]
